FAERS Safety Report 17195035 (Version 8)
Quarter: 2022Q1

REPORT INFORMATION
  Report Type: Spontaneous
  Country: FR (occurrence: FR)
  Receive Date: 20191224
  Receipt Date: 20220204
  Transmission Date: 20220423
  Serious: Yes (Hospitalization, Other)
  Sender: FDA-Public Use
  Company Number: FR-EMA-DD-20191204-BANAVALLI_M-122934

PATIENT
  Age: 72 Year
  Sex: Male

DRUGS (6)
  1. METFORMIN [Interacting]
     Active Substance: METFORMIN HYDROCHLORIDE
     Indication: Type 2 diabetes mellitus
     Dosage: 1000 MG, MORNING AND EVENING
     Route: 065
  2. METFORMIN [Interacting]
     Active Substance: METFORMIN HYDROCHLORIDE
     Dosage: 1000 MILLIGRAM, UNK
     Route: 065
  3. IBUPROFEN [Suspect]
     Active Substance: IBUPROFEN
     Indication: Product used for unknown indication
     Dosage: UNK ()
     Route: 065
  4. DOLUTEGRAVIR SODIUM\RILPIVIRINE HYDROCHLORIDE [Interacting]
     Active Substance: DOLUTEGRAVIR SODIUM\RILPIVIRINE HYDROCHLORIDE
     Indication: HIV infection
     Dosage: 1 DOSAGE FORM, DAILY, 50MG/25MG
     Route: 065
  5. DOLUTEGRAVIR SODIUM\RILPIVIRINE HYDROCHLORIDE [Interacting]
     Active Substance: DOLUTEGRAVIR SODIUM\RILPIVIRINE HYDROCHLORIDE
     Dosage: 50 MILLIGRAM
     Route: 065
  6. DOLUTEGRAVIR SODIUM\RILPIVIRINE HYDROCHLORIDE [Interacting]
     Active Substance: DOLUTEGRAVIR SODIUM\RILPIVIRINE HYDROCHLORIDE
     Dosage: 25 MILLIGRAM
     Route: 065

REACTIONS (8)
  - Acute kidney injury [Unknown]
  - Drug interaction [Unknown]
  - Lactic acidosis [Unknown]
  - Abdominal pain [Unknown]
  - Glomerular filtration rate decreased [Unknown]
  - Vomiting [Unknown]
  - Dehydration [Unknown]
  - Drug interaction [Unknown]
